FAERS Safety Report 5952298-6 (Version None)
Quarter: 2008Q4

REPORT INFORMATION
  Report Type: 
  Country: None (occurrence: None)
  Receive Date: 20081022
  Receipt Date: 20080821
  Transmission Date: 20090506
  Serious: No
  Sender: FDA-Public Use
  Company Number: SPV1-2008-01807

PATIENT
  Age: 9 Year
  Sex: Male
  Weight: 36.7 kg

DRUGS (3)
  1. VYVANSE [Suspect]
     Indication: ATTENTION DEFICIT/HYPERACTIVITY DISORDER
     Dosage: 30 MG, 1X/DAY:QD, ORAL
     Route: 048
     Dates: start: 20071101, end: 20080801
  2. SINGULAIR /01362601/ (MONTELUKAST) [Concomitant]
  3. MULTIVITAMIN /00097801/ (ASCORBIC ACID, CALCIUM PANTOTHENATE, ERGOCALC [Concomitant]

REACTIONS (3)
  - ABDOMINAL DISCOMFORT [None]
  - CRYING [None]
  - HEADACHE [None]
